FAERS Safety Report 7986360-3 (Version None)
Quarter: 2011Q4

REPORT INFORMATION
  Report Type: 
  Country: None (occurrence: None)
  Receive Date: 20111216
  Receipt Date: 20101210
  Transmission Date: 20120403
  Serious: No
  Sender: FDA-Public Use
  Company Number: US-GLAXOSMITHKLINE-A0899321A

PATIENT
  Sex: Female

DRUGS (3)
  1. BLOOD THINNER [Concomitant]
  2. LISINOPRIL [Concomitant]
  3. COREG CR [Suspect]
     Indication: CARDIAC OPERATION
     Dosage: 6.25MG TWICE PER DAY
     Route: 048
     Dates: start: 20080301

REACTIONS (1)
  - DRY EYE [None]
